FAERS Safety Report 8797244 (Version 1)
Quarter: 2012Q4

REPORT INFORMATION
  Report Type: 
  Country: US (occurrence: US)
  Receive Date: 20120919
  Receipt Date: 20120919
  Transmission Date: 20130627
  Serious: Yes (Death, Hospitalization)
  Sender: FDA-Public Use
  Company Number: US-ARROW-2012-15926

PATIENT
  Age: 87 Year
  Sex: Male

DRUGS (2)
  1. SERTRALINE HYDROCHLORIDE (UNKNOWN) [Suspect]
     Indication: DEPRESSION
     Dosage: 50 mg, daily
     Route: 048
  2. OXCARBAZEPINE [Suspect]
     Indication: DIABETIC NEUROPATHY
     Dosage: 150 mg, daily
     Route: 065

REACTIONS (4)
  - Serotonin syndrome [Fatal]
  - Drug interaction [Fatal]
  - Septic shock [Fatal]
  - Brain stem syndrome [Fatal]
